FAERS Safety Report 7005572-9 (Version None)
Quarter: 2010Q3

REPORT INFORMATION
  Report Type: 
  Country: None (occurrence: None)
  Receive Date: 20100921
  Receipt Date: 20100910
  Transmission Date: 20110219
  Serious: Yes (Hospitalization)
  Sender: FDA-Public Use
  Company Number: A0835819A

PATIENT
  Age: 65 Year
  Sex: Male

DRUGS (2)
  1. AVANDIA [Suspect]
     Dosage: 4MG UNKNOWN
     Route: 065
  2. ROSIGLITAZONE MALEATE [Suspect]
     Indication: DIABETES MELLITUS
     Route: 048

REACTIONS (3)
  - ATRIAL FIBRILLATION [None]
  - CARDIAC FAILURE CONGESTIVE [None]
  - CARDIOVASCULAR DISORDER [None]
